FAERS Safety Report 4710547-6 (Version None)
Quarter: 2005Q3

REPORT INFORMATION
  Report Type: 
  Country: None (occurrence: None)
  Receive Date: 20050707
  Receipt Date: 20050620
  Transmission Date: 20060218
  Serious: Yes (Life-Threatening, Hospitalization)
  Sender: FDA-Public Use
  Company Number: GBS050617684

PATIENT
  Age: 84 Year
  Sex: Female
  Weight: 62 kg

DRUGS (3)
  1. DULOXETINE HYDROCHLORIDE [Suspect]
     Indication: URINARY INCONTINENCE
     Dosage: 40 MG/2 DAY
     Dates: start: 20050523, end: 20050526
  2. RISEDRONIC ACID [Concomitant]
  3. ADCAL-D3 [Concomitant]

REACTIONS (2)
  - CIRCULATORY COLLAPSE [None]
  - ORTHOSTATIC HYPOTENSION [None]
